FAERS Safety Report 7625791-8 (Version None)
Quarter: 2011Q3

REPORT INFORMATION
  Report Type: 
  Country: None (occurrence: None)
  Receive Date: 20110721
  Receipt Date: 20110712
  Transmission Date: 20111222
  Serious: Yes (Other)
  Sender: FDA-Public Use
  Company Number: PHHY2011JP63416

PATIENT
  Age: 60 Year
  Sex: Female

DRUGS (3)
  1. RIBAVIRIN [Suspect]
     Indication: HEPATITIS C
     Dosage: UNK
  2. PEG-INTRON [Concomitant]
     Indication: HEPATITIS C
     Dosage: UNK
  3. STEROIDS NOS [Concomitant]
     Indication: HEPATITIS C
     Route: 048

REACTIONS (9)
  - VOGT-KOYANAGI-HARADA SYNDROME [None]
  - HYPOACUSIS [None]
  - VISUAL ACUITY REDUCED [None]
  - DISEASE RECURRENCE [None]
  - UVEITIS [None]
  - RETINAL DETACHMENT [None]
  - EYE PAIN [None]
  - DEAFNESS [None]
  - VISION BLURRED [None]
